FAERS Safety Report 9647511 (Version 2)
Quarter: 2013Q4

REPORT INFORMATION
  Report Type: Spontaneous
  Country: IN (occurrence: IN)
  Receive Date: 20131028
  Receipt Date: 20131114
  Transmission Date: 20140711
  Serious: Yes (Death, Other)
  Sender: FDA-Public Use
  Company Number: IN-ALVOGEN-2013AL002440

PATIENT
  Age: 2 Year
  Sex: Male

DRUGS (1)
  1. DISULFIRAM [Suspect]
     Indication: PRODUCT USED FOR UNKNOWN INDICATION

REACTIONS (12)
  - Toxicity to various agents [Unknown]
  - Accidental poisoning [Unknown]
  - Toxic encephalopathy [Unknown]
  - Unresponsive to stimuli [Unknown]
  - Convulsion [Unknown]
  - Extrapyramidal disorder [Unknown]
  - Metabolic acidosis [Unknown]
  - Kussmaul respiration [Unknown]
  - Somnolence [Unknown]
  - Lethargy [Unknown]
  - Hypotension [Unknown]
  - Pneumonia aspiration [Fatal]
